FAERS Safety Report 4798331-9 (Version None)
Quarter: 2005Q4

REPORT INFORMATION
  Report Type: 
  Country: None (occurrence: None)
  Receive Date: 20051014
  Receipt Date: 20051005
  Transmission Date: 20060501
  Serious: Yes (Hospitalization)
  Sender: FDA-Public Use
  Company Number: DE-BRISTOL-MYERS SQUIBB COMPANY-13135009

PATIENT
  Age: 41 Year
  Sex: Female
  Weight: 59 kg

DRUGS (2)
  1. PACLITAXEL [Suspect]
     Indication: CERVIX CARCINOMA
     Route: 042
     Dates: start: 20050928, end: 20050928
  2. CARBOPLATIN [Suspect]
     Indication: CERVIX CARCINOMA
     Dosage: AUC 5
     Route: 042
     Dates: start: 20050928, end: 20050928

REACTIONS (2)
  - ABDOMINAL PAIN LOWER [None]
  - CHILLS [None]
